FAERS Safety Report 4333853-6 (Version None)
Quarter: 2004Q2

REPORT INFORMATION
  Report Type: 
  Country: None (occurrence: None)
  Receive Date: 20040402
  Receipt Date: 20040329
  Transmission Date: 20050107
  Serious: Yes (Death)
  Sender: FDA-Public Use
  Company Number: S04-USA-01562-01

PATIENT
  Age: 18 Year
  Sex: Female

DRUGS (3)
  1. CELEXA [Suspect]
     Indication: DEPRESSION
     Dates: start: 20040227, end: 20040227
  2. CELEXA [Suspect]
     Indication: DEPRESSION
     Dosage: 40 MG QD PO
     Route: 048
     Dates: end: 20040227
  3. CELEXA [Suspect]
     Indication: DEPRESSION
     Dosage: 60 MG QD PO
     Route: 048

REACTIONS (4)
  - BRAIN DEATH [None]
  - COMA [None]
  - COMPLETED SUICIDE [None]
  - OVERDOSE [None]
